FAERS Safety Report 8912892 (Version 1)
Quarter: 2012Q4

REPORT INFORMATION
  Report Type: 
  Country: US (occurrence: US)
  Receive Date: 20121116
  Receipt Date: 20121116
  Transmission Date: 20130627
  Serious: Yes (Other)
  Sender: FDA-Public Use
  Company Number: US-GLAXOSMITHKLINE-A1000749A

PATIENT
  Sex: Female

DRUGS (2)
  1. LAMOTRIGINE [Suspect]
     Indication: CONVULSION
     Dosage: 150MG Twice per day
     Route: 048
     Dates: start: 2010, end: 2012
  2. NO CONCURRENT MEDICATION [Concomitant]

REACTIONS (3)
  - Petit mal epilepsy [Recovered/Resolved]
  - Lethargy [Unknown]
  - Headache [Unknown]
